FAERS Safety Report 7218801-3 (Version None)
Quarter: 2011Q1

REPORT INFORMATION
  Report Type: 
  Country: None (occurrence: None)
  Receive Date: 20110110
  Receipt Date: 20100603
  Transmission Date: 20110831
  Serious: No
  Sender: FDA-Public Use
  Company Number: US-ABBOTT-10P-163-0644987-00

PATIENT
  Sex: Female

DRUGS (1)
  1. VICODIN [Suspect]
     Indication: PAIN MANAGEMENT
     Dates: start: 20100506

REACTIONS (4)
  - HALLUCINATION [None]
  - HALLUCINATION, AUDITORY [None]
  - NIGHTMARE [None]
  - URTICARIA [None]
